FAERS Safety Report 23557163 (Version 1)
Quarter: 2024Q1

REPORT INFORMATION
  Report Type: Spontaneous
  Country: US (occurrence: None)
  Receive Date: 20240223
  Receipt Date: 20240223
  Transmission Date: 20240409
  Serious: Yes (Hospitalization, Other)
  Sender: FDA-Public Use
  Company Number: US-Unichem Pharmaceuticals (USA) Inc-UCM202402-000167

PATIENT
  Age: 50 Year
  Sex: Male

DRUGS (2)
  1. CLONIDINE HYDROCHLORIDE [Suspect]
     Active Substance: CLONIDINE HYDROCHLORIDE
     Indication: Insomnia
     Dosage: UNKNOWN
  2. OLANZAPINE [Suspect]
     Active Substance: OLANZAPINE
     Indication: Insomnia
     Dosage: UNKNOWN

REACTIONS (16)
  - Disorientation [Recovered/Resolved]
  - Dysarthria [Recovered/Resolved]
  - Aphasia [Recovered/Resolved]
  - Mental status changes [Recovered/Resolved]
  - Hyponatraemia [Unknown]
  - Tachypnoea [Recovered/Resolved]
  - Myoclonus [Recovered/Resolved]
  - Drug dependence [Unknown]
  - Hypertension [Unknown]
  - Agitation [Recovered/Resolved]
  - Pyrexia [Unknown]
  - Tachycardia [Unknown]
  - Drug withdrawal syndrome [Recovered/Resolved]
  - Overdose [Unknown]
  - Drug abuse [Unknown]
  - Off label use [Unknown]
